FAERS Safety Report 26199280 (Version 1)
Quarter: 2025Q4

REPORT INFORMATION
  Report Type: Spontaneous
  Country: US (occurrence: US)
  Receive Date: 20251225
  Receipt Date: 20251225
  Transmission Date: 20260117
  Serious: No
  Sender: ACCORD
  Company Number: US-Accord-511627

PATIENT
  Sex: Female

DRUGS (1)
  1. BUPROPION HYDROCHLORIDE [Suspect]
     Active Substance: BUPROPION HYDROCHLORIDE
     Indication: Major depression
     Dosage: EXTENDED RELEASE TABLET?STRENGTH: 150 MG
     Dates: start: 2025

REACTIONS (3)
  - Product odour abnormal [Unknown]
  - Product substitution issue [Unknown]
  - Poor quality product administered [Unknown]

NARRATIVE: CASE EVENT DATE: 20250101
